FAERS Safety Report 5511091-9 (Version None)
Quarter: 2007Q4

REPORT INFORMATION
  Report Type: 
  Country: None (occurrence: None)
  Receive Date: 20071109
  Receipt Date: 20071031
  Transmission Date: 20080405
  Serious: Yes (Hospitalization)
  Sender: FDA-Public Use
  Company Number: AU-WYE-G00543307

PATIENT
  Sex: Female

DRUGS (1)
  1. TRIFEME [Suspect]
     Indication: CONTRACEPTION
     Route: 048
     Dates: start: 20001001

REACTIONS (14)
  - ABDOMINAL DISTENSION [None]
  - ARTHRALGIA [None]
  - BENIGN BREAST NEOPLASM [None]
  - CONDITION AGGRAVATED [None]
  - DEPRESSION [None]
  - DIZZINESS [None]
  - GASTROOESOPHAGEAL REFLUX DISEASE [None]
  - HEADACHE [None]
  - MIGRAINE [None]
  - MUSCULAR WEAKNESS [None]
  - PAIN IN EXTREMITY [None]
  - PANIC ATTACK [None]
  - PHOTOSENSITIVITY REACTION [None]
  - PNEUMONIA [None]
